FAERS Safety Report 4779361-X (Version None)
Quarter: 2005Q3

REPORT INFORMATION
  Report Type: 
  Country: None (occurrence: None)
  Receive Date: 20050914
  Receipt Date: 20050629
  Transmission Date: 20060218
  Serious: Yes (Other)
  Sender: FDA-Public Use
  Company Number: 409464

PATIENT
  Age: 60 Year
  Sex: Female
  Weight: 70.8 kg

DRUGS (1)
  1. BONIVA [Suspect]
     Dates: start: 20050601

REACTIONS (5)
  - BACK PAIN [None]
  - DIARRHOEA [None]
  - HEADACHE [None]
  - MUSCLE SPASMS [None]
  - PAIN [None]
